FAERS Safety Report 13519101 (Version 3)
Quarter: 2017Q3

REPORT INFORMATION
  Report Type: Spontaneous
  Country: CA (occurrence: CA)
  Receive Date: 20170505
  Receipt Date: 20170725
  Transmission Date: 20171127
  Serious: Yes (Death, Other)
  Sender: FDA-Public Use
  Company Number: CA-VALIDUS PHARMACEUTICALS LLC-CA-2017VAL000694

PATIENT
  Age: 14 Day
  Weight: .65 kg

DRUGS (27)
  1. HYDROCORTISONE. [Concomitant]
     Active Substance: HYDROCORTISONE
     Indication: PRODUCT USED FOR UNKNOWN INDICATION
     Dosage: UNK
  2. VANCOMYCIN [Suspect]
     Active Substance: VANCOMYCIN
     Indication: ANTIBIOTIC THERAPY
     Dosage: 15 MG, QD
     Route: 042
  3. CEFOTAXIME SODIUM [Suspect]
     Active Substance: CEFOTAXIME SODIUM
     Indication: EVIDENCE BASED TREATMENT
     Dosage: 50 MG/KG, EVERY 6 HOURS
     Route: 042
  4. LEVOFLOXACIN. [Suspect]
     Active Substance: LEVOFLOXACIN
     Dosage: 19 MG/KG, EVERY 12 HOURS
     Route: 048
  5. SULFAMETHOXAZOLE W/TRIMETHOPRIM [Suspect]
     Active Substance: SULFAMETHOXAZOLE\TRIMETHOPRIM
     Dosage: 2 MG/KG, EVERY 6 HOURS
     Route: 048
  6. CEFOTAXIME SODIUM [Suspect]
     Active Substance: CEFOTAXIME SODIUM
     Indication: EVIDENCE BASED TREATMENT
  7. AMPICILLIN [Suspect]
     Active Substance: AMPICILLIN
     Indication: ANTIBIOTIC THERAPY
     Dosage: 50 MG/KG, EVERY 12 HOURS
     Route: 042
  8. AMPICILLIN [Suspect]
     Active Substance: AMPICILLIN
     Indication: EVIDENCE BASED TREATMENT
     Dosage: UNK
     Route: 064
  9. ERYTHROMYCIN. [Suspect]
     Active Substance: ERYTHROMYCIN
     Indication: PRODUCT USED FOR UNKNOWN INDICATION
     Dosage: UNK
     Route: 064
  10. GENTAMICIN SULFATE. [Suspect]
     Active Substance: GENTAMICIN SULFATE
     Indication: ANTIBIOTIC THERAPY
     Dosage: 5 MG/KG, EVERY OTHER DAY
     Route: 042
  11. LEVOFLOXACIN. [Suspect]
     Active Substance: LEVOFLOXACIN
     Dosage: 10 MG/KG, EVERY 12 HOURS
     Route: 042
  12. SULFAMETHOXAZOLE W/TRIMETHOPRIM [Suspect]
     Active Substance: SULFAMETHOXAZOLE\TRIMETHOPRIM
     Dosage: 5 MG/KG, EVERY 6 HOURS
     Route: 042
  13. SULFAMETHOXAZOLE W/TRIMETHOPRIM [Suspect]
     Active Substance: SULFAMETHOXAZOLE\TRIMETHOPRIM
     Dosage: 3 MG/KG, UNK
     Route: 065
  14. CEFOTAXIME SODIUM [Suspect]
     Active Substance: CEFOTAXIME SODIUM
     Indication: RENAL FAILURE
     Dosage: 50 MG/KG, EVERY 12 HOURS
     Route: 042
  15. CEFOTAXIME SODIUM [Suspect]
     Active Substance: CEFOTAXIME SODIUM
     Indication: ANTIBIOTIC THERAPY
     Dosage: 50 MG/KG, EVERY 12 HOURS
     Route: 042
  16. LEVOFLOXACIN. [Suspect]
     Active Substance: LEVOFLOXACIN
     Indication: STENOTROPHOMONAS INFECTION
     Dosage: 10 MG/KG, EVERY 12 HOURS
     Route: 048
  17. MEROPENEM. [Suspect]
     Active Substance: MEROPENEM
     Indication: RESPIRATORY TRACT INFECTION
     Dosage: 20 MG/KG, EVERY 12 HOURS
     Route: 042
  18. SULFAMETHOXAZOLE W/TRIMETHOPRIM [Suspect]
     Active Substance: SULFAMETHOXAZOLE\TRIMETHOPRIM
     Dosage: 1 MG/KG, EVERY 12 HOURS
     Route: 042
  19. GENTAMICIN SULFATE. [Suspect]
     Active Substance: GENTAMICIN SULFATE
     Indication: EVIDENCE BASED TREATMENT
  20. SULFAMETHOXAZOLE W/TRIMETHOPRIM [Suspect]
     Active Substance: SULFAMETHOXAZOLE\TRIMETHOPRIM
     Dosage: 2.5 MG/KG, EVERY 6 HOURS
     Route: 048
  21. SULFAMETHOXAZOLE W/TRIMETHOPRIM [Suspect]
     Active Substance: SULFAMETHOXAZOLE\TRIMETHOPRIM
     Dosage: 2 MG/KG, EVERY 6 HOURS
     Route: 042
  22. VANCOMYCIN [Suspect]
     Active Substance: VANCOMYCIN
     Indication: EVIDENCE BASED TREATMENT
     Dosage: 15 MG, QD
     Route: 042
  23. BETAMETHASONE. [Suspect]
     Active Substance: BETAMETHASONE
     Indication: PRODUCT USED FOR UNKNOWN INDICATION
     Dosage: UNK
     Route: 064
  24. LEVOFLOXACIN. [Suspect]
     Active Substance: LEVOFLOXACIN
     Dosage: 1 MG/KG, EVERY 12 HOURS
     Route: 048
  25. SULFAMETHOXAZOLE W/TRIMETHOPRIM [Suspect]
     Active Substance: SULFAMETHOXAZOLE\TRIMETHOPRIM
     Indication: STENOTROPHOMONAS INFECTION
     Dosage: 3 MG/KG, SINGLE
     Route: 042
  26. SULFAMETHOXAZOLE W/TRIMETHOPRIM [Suspect]
     Active Substance: SULFAMETHOXAZOLE\TRIMETHOPRIM
     Dosage: 5 MG/KG, EVERY 6 HOURS
     Route: 048
  27. DEXAMETHASONE. [Concomitant]
     Active Substance: DEXAMETHASONE
     Indication: PRODUCT USED FOR UNKNOWN INDICATION
     Dosage: UNK

REACTIONS (13)
  - Pneumonia bacterial [Fatal]
  - Renal failure [Fatal]
  - Urine output decreased [Fatal]
  - Renal impairment [Fatal]
  - Umbilical erythema [Fatal]
  - Premature baby [Fatal]
  - Respiratory disorder [Fatal]
  - Hypotonia [Fatal]
  - Stenotrophomonas infection [Fatal]
  - Sepsis [Fatal]
  - Lethargy [Fatal]
  - Foetal exposure during pregnancy [Fatal]
  - Off label use [Unknown]
